FAERS Safety Report 4876852-8 (Version None)
Quarter: 2006Q1

REPORT INFORMATION
  Report Type: 
  Country: None (occurrence: None)
  Receive Date: 20060109
  Receipt Date: 20060109
  Transmission Date: 20060701
  Serious: Yes (Life-Threatening, Hospitalization, Disabling)
  Sender: FDA-Public Use
  Company Number: None

PATIENT
  Age: 56 Year
  Sex: Male
  Weight: 102.0593 kg

DRUGS (8)
  1. PLAVIX [Suspect]
     Indication: CORONARY ARTERIAL STENT INSERTION
     Dosage: 75 MG 1 TIME DAILY PO
     Route: 048
     Dates: start: 20041220, end: 20051223
  2. TOPROL-XL [Concomitant]
  3. ASPIRIN [Concomitant]
  4. VYTORIN [Concomitant]
  5. LIPITOR [Concomitant]
  6. ZETIA [Concomitant]
  7. FISH OIL [Concomitant]
  8. VYTORIN [Concomitant]

REACTIONS (7)
  - CARDIAC FAILURE [None]
  - CORONARY ARTERY THROMBOSIS [None]
  - HYPOAESTHESIA [None]
  - OXYGEN SATURATION DECREASED [None]
  - PAIN IN EXTREMITY [None]
  - VENTRICULAR FIBRILLATION [None]
  - VENTRICULAR TACHYCARDIA [None]
